FAERS Safety Report 25725129 (Version 1)
Quarter: 2025Q3

REPORT INFORMATION
  Report Type: Spontaneous
  Country: IN (occurrence: IN)
  Receive Date: 20250826
  Receipt Date: 20250826
  Transmission Date: 20251020
  Serious: Yes (Other)
  Sender: ALKEM
  Company Number: IN-ALKEM LABORATORIES LIMITED-IN-ALKEM-2025-03307

PATIENT
  Age: 23 Year
  Sex: Male

DRUGS (3)
  1. PREGABALIN [Suspect]
     Active Substance: PREGABALIN
     Indication: Drug withdrawal syndrome
     Dosage: 150 MILLIGRAM, QD
     Route: 065
  2. PREGABALIN [Suspect]
     Active Substance: PREGABALIN
     Dosage: 1125 MILLIGRAM, QD (GRADUALLY INCREASED)
     Route: 065
  3. BUPRENORPHINE [Suspect]
     Active Substance: BUPRENORPHINE
     Indication: Drug withdrawal syndrome
     Route: 065

REACTIONS (2)
  - Drug dependence [Unknown]
  - Prescription drug used without a prescription [Unknown]
